FAERS Safety Report 5568748-3 (Version None)
Quarter: 2007Q4

REPORT INFORMATION
  Report Type: 
  Country: None (occurrence: None)
  Receive Date: 20071220
  Receipt Date: 20061214
  Transmission Date: 20080405
  Serious: No
  Sender: FDA-Public Use
  Company Number: A0631595A

PATIENT
  Sex: Male

DRUGS (6)
  1. AVODART [Suspect]
     Indication: BENIGN PROSTATIC HYPERPLASIA
     Dosage: .5MG PER DAY
     Route: 048
  2. CARDIZEM [Concomitant]
  3. BETAPACE [Concomitant]
  4. FLOMAX [Concomitant]
  5. VITAMINS [Concomitant]
  6. COUMADIN [Concomitant]

REACTIONS (2)
  - RASH ERYTHEMATOUS [None]
  - SWELLING FACE [None]
